FAERS Safety Report 4781703-6 (Version None)
Quarter: 2005Q3

REPORT INFORMATION
  Report Type: 
  Country: None (occurrence: None)
  Receive Date: 20050927
  Receipt Date: 20050919
  Transmission Date: 20060218
  Serious: Yes (Death, Hospitalization)
  Sender: FDA-Public Use
  Company Number: 163-20785-05090297

PATIENT
  Age: 40 Year
  Sex: Female

DRUGS (3)
  1. THALOMID [Suspect]
     Indication: PRECURSOR T-LYMPHOBLASTIC LYMPHOMA/LEUKAEMIA
     Dosage: 50 MG, DAILY, ORAL
     Route: 048
     Dates: start: 20050810, end: 20050801
  2. METHOTREXATE [Suspect]
     Indication: PRECURSOR T-LYMPHOBLASTIC LYMPHOMA/LEUKAEMIA
  3. CYTARABINE [Suspect]
     Indication: PRECURSOR T-LYMPHOBLASTIC LYMPHOMA/LEUKAEMIA

REACTIONS (6)
  - ENDOCARDITIS [None]
  - LYMPHOMA [None]
  - MALIGNANT NEOPLASM PROGRESSION [None]
  - MITRAL VALVE INCOMPETENCE [None]
  - SEPSIS [None]
  - STAPHYLOCOCCAL INFECTION [None]
